FAERS Safety Report 8383637-7 (Version None)
Quarter: 2012Q2

REPORT INFORMATION
  Report Type: 
  Country: None (occurrence: None)
  Receive Date: 20120524
  Receipt Date: 20120518
  Transmission Date: 20120825
  Serious: Yes (Other)
  Sender: FDA-Public Use
  Company Number: JP-ROXANE LABORATORIES, INC.-2012-RO-01274RO

PATIENT
  Age: 54 Year
  Sex: Female

DRUGS (8)
  1. PACLITAXEL [Suspect]
     Indication: BREAST CANCER
  2. TRASTUZUMAB [Suspect]
  3. CYCLOPHOSPHAMIDE [Suspect]
     Indication: BREAST CANCER
  4. TRASTUZUMAB [Suspect]
  5. TAMOXIFEN CITRATE [Suspect]
     Indication: BREAST CANCER
     Dosage: 20 MG
  6. TRASTUZUMAB [Suspect]
     Indication: BREAST CANCER
  7. FLUOROURACIL [Suspect]
     Indication: BREAST CANCER
  8. EPIRUBICIN [Suspect]
     Indication: BREAST CANCER

REACTIONS (2)
  - NEUROPATHY PERIPHERAL [None]
  - TOXICITY TO VARIOUS AGENTS [None]
